FAERS Safety Report 9351916 (Version 1)
Quarter: 2013Q2

REPORT INFORMATION
  Report Type: Spontaneous
  Country: GB (occurrence: GB)
  Receive Date: 20130617
  Receipt Date: 20130617
  Transmission Date: 20140414
  Serious: Yes (Other)
  Sender: FDA-Public Use
  Company Number: GB-GLAXOSMITHKLINE-B0897905A

PATIENT
  Sex: Female

DRUGS (6)
  1. SALBUTAMOL [Suspect]
     Dosage: 8IUAX PER DAY
  2. AMLODIPINE [Suspect]
     Indication: HYPERTENSION
  3. AZITHROMYCIN [Suspect]
  4. BENDROFLUMETHIAZIDE [Suspect]
     Indication: HYPERTENSION
  5. CARBOCISTEINE [Suspect]
     Dosage: 6IUAX PER DAY
  6. DOXYCYCLINE [Suspect]
     Dosage: 100MG PER DAY

REACTIONS (3)
  - Bronchiectasis [Unknown]
  - Drug interaction [Unknown]
  - Condition aggravated [Unknown]
